FAERS Safety Report 4504363-8 (Version None)
Quarter: 2004Q4

REPORT INFORMATION
  Report Type: 
  Country: None (occurrence: None)
  Receive Date: 20041117
  Receipt Date: 20041117
  Transmission Date: 20050328
  Serious: Yes (Life-Threatening)
  Sender: FDA-Public Use
  Company Number: None

PATIENT
  Sex: Male
  Weight: 82.5547 kg

DRUGS (2)
  1. FENTANYL PATCH 50 MG [Suspect]
     Indication: CHEST PAIN
     Dosage: 50 MG PATCH Q 3 D
     Route: 062
  2. FENTANYL PATCH 50 MG [Suspect]
     Indication: NECK PAIN
     Dosage: 50 MG PATCH Q 3 D
     Route: 062

REACTIONS (4)
  - EUPHORIC MOOD [None]
  - IMPAIRED DRIVING ABILITY [None]
  - MEDICATION ERROR [None]
  - PHARMACEUTICAL PRODUCT COMPLAINT [None]
